FAERS Safety Report 4289887-3 (Version None)
Quarter: 2004Q1

REPORT INFORMATION
  Report Type: 
  Country: None (occurrence: None)
  Receive Date: 20040209
  Receipt Date: 20031208
  Transmission Date: 20041129
  Serious: Yes (Hospitalization, Other)
  Sender: FDA-Public Use
  Company Number: 200320365US

PATIENT
  Sex: Female
  Weight: 57 kg

DRUGS (7)
  1. TAXOTERE [Suspect]
     Indication: BREAST CANCER METASTATIC
     Dates: start: 20031027, end: 20031110
  2. MS CONTIN [Concomitant]
     Dosage: DOSE: UNK
  3. VICODIN [Concomitant]
     Indication: PAIN
     Dosage: DOSE: UNK
  4. MULTI-VITAMINS [Concomitant]
     Dosage: DOSE: UNK
  5. NYSTATIN [Concomitant]
     Dosage: DOSE: 500,000; DOSE UNIT: UNITS
     Route: 048
  6. DURICEF [Concomitant]
     Dosage: DOSE: UNK
  7. ZOMETA [Concomitant]
     Indication: METASTASES TO BONE

REACTIONS (7)
  - CELLULITIS [None]
  - DIARRHOEA [None]
  - EXCORIATION [None]
  - LOCALISED INFECTION [None]
  - OEDEMA PERIPHERAL [None]
  - SKIN ULCER [None]
  - STAPHYLOCOCCAL INFECTION [None]
